FAERS Safety Report 11799651 (Version 1)
Quarter: 2015Q4

REPORT INFORMATION
  Report Type: Spontaneous
  Country: US (occurrence: US)
  Receive Date: 20151203
  Receipt Date: 20151203
  Transmission Date: 20160305
  Serious: Yes (Other)
  Sender: FDA-Public Use
  Company Number: US-TEVA-614623USA

PATIENT
  Age: 22 Year
  Sex: Male

DRUGS (3)
  1. IOPANOIC ACID. [Concomitant]
     Active Substance: IOPANOIC ACID
  2. PROPRANOLOL [Suspect]
     Active Substance: PROPRANOLOL\PROPRANOLOL HYDROCHLORIDE
     Dosage: 20 MG 3 TIMES PER DAY
  3. METHIMAZOLE. [Concomitant]
     Active Substance: METHIMAZOLE
     Dosage: 10 MG TWICE PER DAY

REACTIONS (1)
  - Suicide attempt [Unknown]
